FAERS Safety Report 21081282 (Version 1)
Quarter: 2022Q3

REPORT INFORMATION
  Report Type: Spontaneous
  Country: US (occurrence: US)
  Receive Date: 20220714
  Receipt Date: 20220714
  Transmission Date: 20221027
  Serious: No
  Sender: FDA-Public Use
  Company Number: US-ALKERMES INC.-ALK-2022-003388

PATIENT
  Age: 33 Year
  Sex: Female
  Weight: 46.259 kg

DRUGS (3)
  1. VIVITROL [Suspect]
     Active Substance: NALTREXONE
     Indication: Product used for unknown indication
     Dosage: 380 MILLIGRAM, QMO
     Route: 030
     Dates: start: 20220630
  2. VIVITROL [Suspect]
     Active Substance: NALTREXONE
     Dosage: 380 MILLIGRAM, QMO
     Route: 030
     Dates: start: 202202, end: 202202
  3. GABAPENTIN [Concomitant]
     Active Substance: GABAPENTIN
     Indication: Drug dependence
     Dosage: UNK
     Route: 065

REACTIONS (6)
  - Chromaturia [Not Recovered/Not Resolved]
  - Product administered by wrong person [Recovered/Resolved]
  - Fatigue [Not Recovered/Not Resolved]
  - Abdominal pain upper [Not Recovered/Not Resolved]
  - Weight decreased [Not Recovered/Not Resolved]
  - Headache [Not Recovered/Not Resolved]

NARRATIVE: CASE EVENT DATE: 20220101
